FAERS Safety Report 10997930 (Version 1)
Quarter: 2015Q2

REPORT INFORMATION
  Report Type: Spontaneous
  Country: US (occurrence: None)
  Receive Date: 20150407
  Receipt Date: 20150407
  Transmission Date: 20150821
  Serious: Yes (Disabling, Other)
  Sender: FDA-Public Use
  Company Number: None

PATIENT
  Age: 60 Year
  Sex: Female
  Weight: 74.84 kg

DRUGS (19)
  1. ETODOLAC. [Concomitant]
     Active Substance: ETODOLAC
  2. TRIAMCINOLONE ACETONIDE. [Concomitant]
     Active Substance: TRIAMCINOLONE ACETONIDE
  3. ABILIFY [Concomitant]
     Active Substance: ARIPIPRAZOLE
  4. PROPANOLOL [Concomitant]
     Active Substance: PROPRANOLOL HYDROCHLORIDE
  5. GLUCOPHAGE [Suspect]
     Active Substance: METFORMIN HYDROCHLORIDE
     Indication: TYPE 2 DIABETES MELLITUS
     Dosage: 1 PILL TWICE DAILY BY MOUTH
     Route: 048
     Dates: start: 20150216
  6. TRAVATAN Z [Concomitant]
     Active Substance: TRAVOPROST
  7. VITAMIN-A [Concomitant]
  8. SYSTANE (HYPROMELLOSE 2910 (4000 MPA.S)) [Concomitant]
     Active Substance: HYPROMELLOSE 2910 (4000 MPA.S)
  9. HERBAL TEAS [Concomitant]
     Active Substance: HERBALS
  10. METFORMIN [Concomitant]
     Active Substance: METFORMIN HYDROCHLORIDE
  11. TIZANIDINE (TIZANIDINE) [Concomitant]
     Active Substance: TIZANIDINE
  12. SALINE MIST [Concomitant]
     Active Substance: SODIUM CHLORIDE
  13. AMMONIUM LACTATE. [Concomitant]
     Active Substance: AMMONIUM LACTATE
  14. ASPIRIN. [Concomitant]
     Active Substance: ASPIRIN
  15. OMEGA-3 ACIDS [Concomitant]
     Active Substance: OMEGA-3 FATTY ACIDS
  16. ATORVASTATIN [Concomitant]
     Active Substance: ATORVASTATIN
  17. ALTACE [Concomitant]
     Active Substance: RAMIPRIL
  18. MELATONIN [Concomitant]
     Active Substance: MELATONIN
  19. VITAMIN B COMPLEX [Concomitant]
     Active Substance: CYANOCOBALAMIN\DEXPANTHENOL\NIACINAMIDE\PYRIDOXINE HYDROCHLORIDE\RIBOFLAVIN 5^-PHOSPHATE SODIUM\THIAMINE HYDROCHLORIDE\VITAMIN B COMPLEX

REACTIONS (11)
  - Constipation [None]
  - Heart rate decreased [None]
  - Flatulence [None]
  - Abdominal distension [None]
  - Hypoaesthesia [None]
  - Diarrhoea [None]
  - Weight increased [None]
  - Blood glucose decreased [None]
  - Headache [None]
  - Abdominal pain upper [None]
  - Dizziness [None]

NARRATIVE: CASE EVENT DATE: 20150315
